FAERS Safety Report 5059346-9 (Version None)
Quarter: 2006Q3

REPORT INFORMATION
  Report Type: 
  Country: None (occurrence: None)
  Receive Date: 20060724
  Receipt Date: 20060511
  Transmission Date: 20061208
  Serious: Yes (Other)
  Sender: FDA-Public Use
  Company Number: PHEH2006US06221

PATIENT
  Age: 45 Year
  Sex: Male

DRUGS (4)
  1. PEPCID [Concomitant]
     Indication: STOMACH DISCOMFORT
     Dosage: 20 MG, UNK
     Dates: start: 19930701
  2. LOPRESSOR [Suspect]
     Indication: HYPERTENSION
     Dosage: 50 MG, BID
     Route: 048
     Dates: start: 19930701
  3. ANALGESICS [Concomitant]
  4. VICODIN [Concomitant]
     Indication: PAIN
     Dosage: 5/500 MG 1-2 TABS PO Q6H
     Route: 048
     Dates: start: 20050901

REACTIONS (18)
  - AMNESIA [None]
  - BLOOD GLUCOSE INCREASED [None]
  - CEREBRAL HAEMATOMA [None]
  - CONVULSION [None]
  - CRANIOTOMY [None]
  - ENCEPHALOMALACIA [None]
  - HAEMOGLOBIN DECREASED [None]
  - HEADACHE [None]
  - INCISION SITE OEDEMA [None]
  - MEAN CELL VOLUME DECREASED [None]
  - MENINGIOMA [None]
  - NEOPLASM PROGRESSION [None]
  - POST PROCEDURAL COMPLICATION [None]
  - PSEUDOMENINGOCELE [None]
  - RADIOTHERAPY [None]
  - RED BLOOD CELL COUNT DECREASED [None]
  - VISION BLURRED [None]
  - WHITE BLOOD CELL COUNT INCREASED [None]
